FAERS Safety Report 5286830-5 (Version None)
Quarter: 2007Q2

REPORT INFORMATION
  Report Type: 
  Country: None (occurrence: None)
  Receive Date: 20070404
  Receipt Date: 20070323
  Transmission Date: 20071010
  Serious: Yes (Hospitalization)
  Sender: FDA-Public Use
  Company Number: FR-ROCHE-480258

PATIENT
  Age: 60 Year
  Sex: Male

DRUGS (24)
  1. ZENAPAX [Suspect]
     Route: 042
     Dates: start: 20051109, end: 20051109
  2. ZENAPAX [Suspect]
     Route: 042
     Dates: start: 20051115, end: 20051115
  3. MYCOPHENOLATE MOFETIL [Suspect]
     Route: 042
     Dates: start: 20051109, end: 20051112
  4. MYCOPHENOLATE MOFETIL [Suspect]
     Route: 042
     Dates: start: 20051212, end: 20051212
  5. MYCOPHENOLATE MOFETIL [Suspect]
     Route: 048
     Dates: start: 20051113, end: 20051211
  6. MYCOPHENOLATE MOFETIL [Suspect]
     Route: 048
     Dates: start: 20051212, end: 20051212
  7. MYCOPHENOLATE MOFETIL [Suspect]
     Route: 048
     Dates: start: 20051213, end: 20061115
  8. METHYLPREDNISOLONE 16MG TAB [Suspect]
     Route: 065
     Dates: start: 20051109, end: 20051116
  9. METHYLPREDNISOLONE 16MG TAB [Suspect]
     Route: 065
     Dates: start: 20060721, end: 20060724
  10. PREDNISOLONE [Suspect]
     Dosage: TAPER ACCORDING TO LOCAL PROTOCOL
     Route: 065
     Dates: start: 20051116
  11. TACROLIMUS [Suspect]
     Dosage: ADJUSTMENT TO REACH PRE-DEFINED TARGET LEVELS
     Route: 048
     Dates: start: 20051112, end: 20061115
  12. PIPERACILLINE [Concomitant]
     Indication: ANTIBIOTIC PROPHYLAXIS
     Dates: start: 20051109, end: 20051111
  13. GENTAMICIN [Concomitant]
     Indication: ANTIBIOTIC PROPHYLAXIS
     Dates: start: 20051109, end: 20051110
  14. GANCICLOVIR [Concomitant]
     Dates: start: 20051109, end: 20051118
  15. VALGANCICLOVIR HCL [Concomitant]
     Dates: start: 20051118, end: 20060511
  16. OMEPRAZOLE [Concomitant]
     Dates: start: 20051109, end: 20051110
  17. ESOMEPRAZOLE MAGNESIUM [Concomitant]
     Dates: start: 20051110
  18. ACIDE URSODEOXYCHOLIQUE [Concomitant]
     Indication: PROPHYLAXIS
     Dates: start: 20051114, end: 20060918
  19. AMPHOTERICIN B [Concomitant]
     Indication: PROPHYLAXIS
     Dates: start: 20051109, end: 20060209
  20. COLISTIN [Concomitant]
     Indication: PROPHYLAXIS
     Dates: start: 20051109, end: 20051123
  21. ATROPINE SULFATE [Concomitant]
     Indication: BRADYCARDIA
     Dates: start: 20051109, end: 20051109
  22. ASPEGIC 1000 [Concomitant]
     Indication: THROMBOSIS PROPHYLAXIS
     Dates: start: 20051109, end: 20060719
  23. BACTRIM [Concomitant]
     Indication: PROPHYLAXIS
     Dates: start: 20051109, end: 20060208
  24. TAZOCILLINE [Concomitant]
     Indication: ANTIBIOTIC PROPHYLAXIS
     Dates: start: 20051109, end: 20051111

REACTIONS (4)
  - CHEST PAIN [None]
  - CYTOMEGALOVIRUS INFECTION [None]
  - DYSPNOEA [None]
  - FATIGUE [None]
